FAERS Safety Report 24066148 (Version 2)
Quarter: 2024Q3

REPORT INFORMATION
  Report Type: Spontaneous
  Country: FR (occurrence: None)
  Receive Date: 20240709
  Receipt Date: 20240806
  Transmission Date: 20241017
  Serious: Yes (Death, Other)
  Sender: ASTRAZENECA
  Company Number: 2024A156076

PATIENT
  Age: 75 Year
  Sex: Male
  Weight: 90 kg

DRUGS (1)
  1. DURVALUMAB [Suspect]
     Active Substance: DURVALUMAB
     Indication: Non-small cell lung cancer
     Dosage: 10 MG/KG, EVERY TWO WEEKS
     Route: 042
     Dates: start: 20190516, end: 20190722

REACTIONS (7)
  - Malignant neoplasm progression [Fatal]
  - Metastases to central nervous system [Unknown]
  - Chest scan abnormal [Unknown]
  - Hypothyroidism [Unknown]
  - Asthenia [Unknown]
  - Decreased appetite [Unknown]
  - Off label use [Unknown]
